FAERS Safety Report 6638187-2 (Version None)
Quarter: 2010Q1

REPORT INFORMATION
  Report Type: 
  Country: None (occurrence: None)
  Receive Date: 20100312
  Receipt Date: 20100301
  Transmission Date: 20100710
  Serious: Yes (Hospitalization)
  Sender: FDA-Public Use
  Company Number: 232128J10USA

PATIENT
  Age: 49 Year
  Sex: Female

DRUGS (4)
  1. REBIF [Suspect]
     Indication: MULTIPLE SCLEROSIS
     Dosage: 44 MCG, 3 IN 1 WEEKS, SUBCUTANEOUS
     Dates: start: 20080717, end: 20100101
  2. HYDORCODONE (HYDORCODONE) [Concomitant]
  3. MUSCLE RELAXANT (MUSCLE RELAXANTS) [Concomitant]
  4. VITAMIN D [Concomitant]

REACTIONS (5)
  - BACTERIAL INFECTION [None]
  - INJECTION SITE REACTION [None]
  - LABORATORY TEST ABNORMAL [None]
  - MALAISE [None]
  - WHITE BLOOD CELL COUNT DECREASED [None]
